FAERS Safety Report 25090429 (Version 4)
Quarter: 2025Q4

REPORT INFORMATION
  Report Type: Report from Study
  Country: CL (occurrence: CL)
  Receive Date: 20250318
  Receipt Date: 20251120
  Transmission Date: 20260117
  Serious: Yes (Death, Other)
  Sender: TAKEDA
  Company Number: CL-TAKEDA-2025TUS025160

PATIENT
  Age: 61 Year
  Sex: Male
  Weight: 59.5 kg

DRUGS (5)
  1. BRIGATINIB [Suspect]
     Active Substance: BRIGATINIB
     Indication: Product used for unknown indication
     Dosage: UNK
  2. BRIGATINIB [Suspect]
     Active Substance: BRIGATINIB
     Dosage: UNK
  3. BRIGATINIB [Suspect]
     Active Substance: BRIGATINIB
     Dosage: UNK
  4. BRIGATINIB [Suspect]
     Active Substance: BRIGATINIB
     Dosage: UNK
  5. ALECTINIB [Concomitant]
     Active Substance: ALECTINIB
     Dosage: 1200 MILLIGRAM

REACTIONS (16)
  - Multiple organ dysfunction syndrome [Fatal]
  - Lung neoplasm malignant [Fatal]
  - Lipase abnormal [Recovered/Resolved]
  - Amylase abnormal [Recovered/Resolved]
  - Skin hyperpigmentation [Recovered/Resolved]
  - Xerosis [Recovered/Resolved]
  - Weight decreased [Unknown]
  - Anaemia [Unknown]
  - General physical health deterioration [Unknown]
  - Amylase increased [Unknown]
  - Blood bilirubin increased [Unknown]
  - Blood alkaline phosphatase increased [Unknown]
  - Red cell distribution width increased [Unknown]
  - Neutrophil percentage increased [Unknown]
  - Blood creatine phosphokinase increased [Unknown]
  - Blood lactate dehydrogenase increased [Unknown]

NARRATIVE: CASE EVENT DATE: 20220531
